FAERS Safety Report 8765536 (Version 1)
Quarter: 2012Q4

REPORT INFORMATION
  Report Type: 
  Country: US (occurrence: US)
  Receive Date: 20120903
  Receipt Date: 20120903
  Transmission Date: 20130627
  Serious: No
  Sender: FDA-Public Use
  Company Number: US-BAYER-2012-089989

PATIENT

DRUGS (5)
  1. ALEVE CAPLET/TABLET,MIDOL EXTENDED RELIEF CAPLET [Suspect]
     Indication: PRODUCT USED FOR UNKNOWN INDICATION
     Route: 048
  2. NAUSEA DRUGS [Concomitant]
  3. CHEMO [Concomitant]
  4. NEULASTA [Concomitant]
  5. CLARITIN [Concomitant]

REACTIONS (1)
  - Headache [None]
